FAERS Safety Report 7048240-X (Version None)
Quarter: 2010Q4

REPORT INFORMATION
  Report Type: 
  Country: None (occurrence: None)
  Receive Date: 20101015
  Receipt Date: 20101006
  Transmission Date: 20110411
  Serious: Yes (Hospitalization, Other)
  Sender: FDA-Public Use
  Company Number: CA-ABBOTT-10P-028-0676724-00

PATIENT
  Sex: Male

DRUGS (3)
  1. HUMIRA [Suspect]
     Indication: CROHN'S DISEASE
     Dosage: 80 MG AT WEEK 2
     Route: 058
     Dates: start: 20100902, end: 20100916
  2. PREDNISONE [Concomitant]
     Indication: PRODUCT USED FOR UNKNOWN INDICATION
     Route: 048
  3. EPIPEN [Concomitant]
     Indication: HYPERSENSITIVITY

REACTIONS (5)
  - CONDITION AGGRAVATED [None]
  - LIFE SUPPORT [None]
  - PNEUMONIA [None]
  - PYREXIA [None]
  - TREMOR [None]
